FAERS Safety Report 15792485 (Version 1)
Quarter: 2019Q1

REPORT INFORMATION
  Report Type: Spontaneous
  Country: US (occurrence: US)
  Receive Date: 20190107
  Receipt Date: 20190107
  Transmission Date: 20190417
  Serious: No
  Sender: FDA-Public Use
  Company Number: US-ELI_LILLY_AND_COMPANY-US201812012406

PATIENT
  Age: 74 Year
  Sex: Female

DRUGS (2)
  1. TRULICITY [Suspect]
     Active Substance: DULAGLUTIDE
     Indication: TYPE 2 DIABETES MELLITUS
     Dosage: 1.5 MG, WEEKLY (1/W)
     Route: 065
     Dates: start: 201710
  2. TRULICITY [Suspect]
     Active Substance: DULAGLUTIDE
     Dosage: 1.5 MG, WEEKLY (1/W)
     Route: 065
     Dates: start: 201710

REACTIONS (8)
  - Macular hole [Unknown]
  - Visual impairment [Unknown]
  - Product dose omission [Unknown]
  - Skin abrasion [Unknown]
  - Haemorrhage [Unknown]
  - Ephelides [Unknown]
  - Vision blurred [Unknown]
  - Dry skin [Unknown]

NARRATIVE: CASE EVENT DATE: 201712
